FAERS Safety Report 10626231 (Version 1)
Quarter: 2014Q4

REPORT INFORMATION
  Report Type: Spontaneous
  Country: US (occurrence: US)
  Receive Date: 20141204
  Receipt Date: 20141204
  Transmission Date: 20150529
  Serious: Yes (Other)
  Sender: FDA-Public Use
  Company Number: US-WATSON-2014-25934

PATIENT
  Age: 52 Year
  Sex: Female

DRUGS (1)
  1. TESTOSTERONE PROPIONATE (UNKNOWN) [Suspect]
     Active Substance: TESTOSTERONE PROPIONATE
     Indication: LIBIDO DECREASED
     Dosage: 300 ?G, DAILY
     Route: 062

REACTIONS (1)
  - Osteonecrosis [Unknown]
